FAERS Safety Report 5744378-5 (Version None)
Quarter: 2008Q2

REPORT INFORMATION
  Report Type: 
  Country: None (occurrence: None)
  Receive Date: 20080520
  Receipt Date: 20080509
  Transmission Date: 20081010
  Serious: Yes (Hospitalization)
  Sender: FDA-Public Use
  Company Number: US-ELI_LILLY_AND_COMPANY-US200805002082

PATIENT
  Sex: Female
  Weight: 72.562 kg

DRUGS (6)
  1. BYETTA [Suspect]
     Indication: TYPE 2 DIABETES MELLITUS
     Dosage: 5 UG, 2/D
     Route: 058
     Dates: start: 20050501, end: 20050601
  2. BYETTA [Suspect]
     Dosage: 10 UG, 2/D
     Route: 058
     Dates: start: 20050601
  3. LISINOPRIL [Concomitant]
     Indication: BLOOD PRESSURE
     Dosage: UNK, UNKNOWN
     Dates: start: 20070101
  4. POTASSIUM CHLORIDE [Concomitant]
     Indication: CARDIAC DISORDER
     Dosage: UNK, UNKNOWN
     Dates: start: 20070101
  5. METFORMIN HCL [Concomitant]
     Indication: TYPE 2 DIABETES MELLITUS
     Dosage: 1000 MG, 2/D
  6. CHOLESTEROL- AND TRIGLYCERIDE REDUCERS [Concomitant]
     Dosage: UNK, UNKNOWN
     Dates: start: 20070101

REACTIONS (9)
  - ACCIDENTAL NEEDLE STICK [None]
  - BLEEDING TIME PROLONGED [None]
  - CAROTID ARTERY OCCLUSION [None]
  - CHEST PAIN [None]
  - CORONARY ARTERY OCCLUSION [None]
  - HEART DISEASE CONGENITAL [None]
  - HEART RATE INCREASED [None]
  - LIMB DISCOMFORT [None]
  - PUNCTURE SITE HAEMORRHAGE [None]
